FAERS Safety Report 18069771 (Version 2)
Quarter: 2021Q4

REPORT INFORMATION
  Report Type: Spontaneous
  Country: US (occurrence: US)
  Receive Date: 20200727
  Receipt Date: 20211115
  Transmission Date: 20220304
  Serious: No
  Sender: FDA-Public Use
  Company Number: US-NOVARTISTESTPH-NVSC2020US203435

PATIENT
  Sex: Male

DRUGS (1)
  1. AMOXICILLIN\CLAVULANIC ACID [Suspect]
     Active Substance: AMOXICILLIN\CLAVULANIC ACID
     Indication: Peripheral swelling
     Dosage: 1 DF, Q12H
     Route: 048
     Dates: start: 20200716

REACTIONS (2)
  - Product use complaint [Unknown]
  - Product dose omission issue [Unknown]
